FAERS Safety Report 13712557 (Version 1)
Quarter: 2017Q3

REPORT INFORMATION
  Report Type: Spontaneous
  Country: US (occurrence: US)
  Receive Date: 20170703
  Receipt Date: 20170703
  Transmission Date: 20171127
  Serious: No
  Sender: FDA-Public Use
  Company Number: US-JNJFOC-20170524722

PATIENT
  Age: 35 Year
  Weight: 80 kg

DRUGS (2)
  1. QUESTRAN [Concomitant]
     Active Substance: CHOLESTYRAMINE
     Route: 065
  2. STELARA [Suspect]
     Active Substance: USTEKINUMAB
     Indication: CROHN^S DISEASE
     Route: 042
     Dates: start: 20170518

REACTIONS (5)
  - Back pain [Unknown]
  - Body temperature decreased [Unknown]
  - Diarrhoea [Unknown]
  - Feeling hot [Unknown]
  - Abdominal pain [Unknown]

NARRATIVE: CASE EVENT DATE: 201705
